FAERS Safety Report 6180539-1 (Version None)
Quarter: 2009Q2

REPORT INFORMATION
  Report Type: 
  Country: None (occurrence: None)
  Receive Date: 20090506
  Receipt Date: 20090428
  Transmission Date: 20091009
  Serious: Yes (Other)
  Sender: FDA-Public Use
  Company Number: US-PFIZER INC-2009205173

PATIENT
  Sex: Male

DRUGS (3)
  1. NORVASC [Suspect]
  2. REVLIMID [Suspect]
     Indication: MULTIPLE MYELOMA
     Dosage: 15 MG, 1X/DAY
     Route: 048
     Dates: start: 20081201, end: 20090101
  3. REVLIMID [Suspect]
     Dosage: 10 MG, 1X/DAY
     Route: 048
     Dates: start: 20090101

REACTIONS (2)
  - ABASIA [None]
  - OEDEMA PERIPHERAL [None]
